FAERS Safety Report 17549149 (Version 1)
Quarter: 2020Q1

REPORT INFORMATION
  Report Type: Report from Study
  Country: CA (occurrence: CA)
  Receive Date: 20200317
  Receipt Date: 20200317
  Transmission Date: 20200409
  Serious: Yes (Other)
  Sender: FDA-Public Use
  Company Number: CA-TEVA-2020-CA-1201634

PATIENT
  Age: 48 Year
  Sex: Female
  Weight: 62 kg

DRUGS (15)
  1. NICOTINE POLACRILEX [Concomitant]
     Active Substance: NICOTINE
     Route: 065
  2. NEURONTIN [Concomitant]
     Active Substance: GABAPENTIN
  3. FOLIC ACID. [Concomitant]
     Active Substance: FOLIC ACID
  4. BENADRYL [Suspect]
     Active Substance: DIPHENHYDRAMINE HYDROCHLORIDE
     Indication: PREMEDICATION
     Route: 042
  5. ACTEMRA [Suspect]
     Active Substance: TOCILIZUMAB
     Route: 042
  6. TRAMADOL. [Concomitant]
     Active Substance: TRAMADOL
  7. PREDNISONE. [Concomitant]
     Active Substance: PREDNISONE
  8. HYDROMORPHONE [Concomitant]
     Active Substance: HYDROMORPHONE
     Route: 065
  9. NASONEX [Concomitant]
     Active Substance: MOMETASONE FUROATE
     Route: 045
  10. ALPRAZOLAM. [Concomitant]
     Active Substance: ALPRAZOLAM
     Route: 065
  11. TRAZODONE [Concomitant]
     Active Substance: TRAZODONE HYDROCHLORIDE
     Route: 065
  12. METHOTREXATE. [Suspect]
     Active Substance: METHOTREXATE
     Indication: PRODUCT USED FOR UNKNOWN INDICATION
     Route: 065
  13. ACTEMRA [Suspect]
     Active Substance: TOCILIZUMAB
     Indication: RHEUMATOID ARTHRITIS
     Route: 042
  14. DOCUSATE [Concomitant]
     Active Substance: DOCUSATE
     Route: 065
  15. ACETAMINOPHEN. [Concomitant]
     Active Substance: ACETAMINOPHEN
     Route: 065

REACTIONS (23)
  - Alopecia [Not Recovered/Not Resolved]
  - Arthralgia [Not Recovered/Not Resolved]
  - Infusion related reaction [Not Recovered/Not Resolved]
  - Pruritus [Not Recovered/Not Resolved]
  - Erythema [Not Recovered/Not Resolved]
  - Hypotension [Not Recovered/Not Resolved]
  - Skin abrasion [Not Recovered/Not Resolved]
  - Wound [Not Recovered/Not Resolved]
  - Disorientation [Not Recovered/Not Resolved]
  - Oropharyngeal pain [Not Recovered/Not Resolved]
  - Therapy partial responder [Not Recovered/Not Resolved]
  - Cough [Not Recovered/Not Resolved]
  - Fall [Not Recovered/Not Resolved]
  - Skin laceration [Not Recovered/Not Resolved]
  - Somnolence [Not Recovered/Not Resolved]
  - Bronchitis [Not Recovered/Not Resolved]
  - Drug ineffective [Not Recovered/Not Resolved]
  - Nasopharyngitis [Not Recovered/Not Resolved]
  - Therapeutic response decreased [Not Recovered/Not Resolved]
  - Hypersensitivity [Not Recovered/Not Resolved]
  - Hepatic enzyme increased [Not Recovered/Not Resolved]
  - Breast pain [Not Recovered/Not Resolved]
  - Urticaria [Not Recovered/Not Resolved]
